FAERS Safety Report 9522588 (Version 1)
Quarter: 2013Q1

REPORT INFORMATION
  Report Type: Spontaneous
  Country: US (occurrence: None)
  Receive Date: 20130305
  Receipt Date: 20130305
  Transmission Date: 20140127
  Serious: Yes (Hospitalization, Other)
  Sender: FDA-Public Use
  Company Number: 163-21880-12070758

PATIENT
  Age: 77 Year
  Sex: Male
  Weight: 94.8 kg

DRUGS (39)
  1. REVLIMID (LENALIDOMIDE) [Suspect]
     Indication: PLASMA CELL MYELOMA
     Route: 048
     Dates: start: 20120319
  2. MIRALAX [Concomitant]
  3. ADULT ASPIRIN (ACETYLSALICYLIC ACID) [Concomitant]
  4. VITAMIN D3 (COLECALCIFEROL) [Concomitant]
  5. NEXIUM [Concomitant]
  6. VITAMIN B12 (CYANOCOBALAMIN) [Concomitant]
  7. OMEGA 3 (FISH OIL) [Concomitant]
  8. LASIX (FUROSEMIDE) [Concomitant]
  9. GABAPENTIN [Concomitant]
  10. FLUDROCORTISONE [Concomitant]
  11. PLENDIL (FELODIPINE) [Concomitant]
  12. LIPIOR (ATOVASTATIN) [Concomitant]
  13. TRICOR (FENOFIBRATE) [Concomitant]
  14. UROXATRAL (ALFUZOSIN HYDROCHLORIDE) [Concomitant]
  15. KCL-20 (POTASSIUM CHLORIDE) [Concomitant]
  16. METOPROLOL TARTRATE (METOPROLOL TARTRATE) [Concomitant]
  17. FENOFIBRATE (FENOFIBRATE) [Concomitant]
  18. OXYCODONE [Concomitant]
  19. NEURONTIN (GABAPENTIN) [Concomitant]
  20. TEFLORA (TOTALFLORA) [Concomitant]
  21. AZITHROMYRCIN [Concomitant]
  22. VELCADE (BORTEZOMIB) [Concomitant]
  23. DEXAMETHASONE (DEXAMETHASONE) [Concomitant]
  24. CEFTAROLINE [Concomitant]
  25. MOXIFLOXACIN [Concomitant]
  26. CHOLECALCIFEROL [Concomitant]
  27. CYANOCOBALAMIN [Concomitant]
  28. FENTANYL [Concomitant]
  29. POTASSIUM [Concomitant]
  30. POLYETHYLENE GLYCOL (MACROGOL) [Concomitant]
  31. LISINOPRIL [Concomitant]
  32. LEXAPRO (ESCITALOPRAM OXALATE) [Concomitant]
  33. ATIVAN (LORAZEPAM) [Concomitant]
  34. MUCINEX (GUAFENESIN) [Concomitant]
  35. NORVASC (AMLODIPINE BESILATE) [Concomitant]
  36. MAGNESIUM OXIDE (MAGNESIUM OCIDE) [Concomitant]
  37. ONDANSETRON [Concomitant]
  38. PANTOPRAZOLE [Concomitant]
  39. FELODIPINE [Concomitant]

REACTIONS (5)
  - Hypertension [None]
  - Atrial fibrillation [None]
  - Deep vein thrombosis [None]
  - Pneumonia [None]
  - Dyspnoea [None]
